FAERS Safety Report 20791207 (Version 3)
Quarter: 2022Q2

REPORT INFORMATION
  Report Type: Spontaneous
  Country: DE (occurrence: DE)
  Receive Date: 20220505
  Receipt Date: 20220614
  Transmission Date: 20220721
  Serious: Yes (Hospitalization)
  Sender: FDA-Public Use
  Company Number: DE-NOVARTISPH-NVSC2022DE099625

PATIENT
  Age: 36 Year
  Sex: Male
  Weight: 96 kg

DRUGS (1)
  1. TERBINAFINE [Suspect]
     Active Substance: TERBINAFINE
     Indication: Onychomycosis
     Dosage: 250 MG
     Route: 048

REACTIONS (2)
  - Ventricular extrasystoles [Unknown]
  - Dizziness [Unknown]

NARRATIVE: CASE EVENT DATE: 20210827
